FAERS Safety Report 9203358 (Version 1)
Quarter: 2013Q1

REPORT INFORMATION
  Report Type: Spontaneous
  Country: CA (occurrence: None)
  Receive Date: 20130329
  Receipt Date: 20130329
  Transmission Date: 20140127
  Serious: Yes (Other)
  Sender: FDA-Public Use
  Company Number: 2013-093

PATIENT
  Age: 38 Year
  Sex: Female

DRUGS (3)
  1. CLOZAPINE [Suspect]
     Route: 048
  2. ZYPREXA (OLANZAPINE) [Suspect]
     Route: 048
  3. PAROXETINE [Suspect]
     Route: 048

REACTIONS (10)
  - Drug level increased [None]
  - Complex partial seizures [None]
  - Aggression [None]
  - Unresponsive to stimuli [None]
  - Dysarthria [None]
  - Confusional state [None]
  - Asthenia [None]
  - Muscular weakness [None]
  - Drug interaction [None]
  - Dizziness [None]
